FAERS Safety Report 7631225-X (Version None)
Quarter: 2011Q3

REPORT INFORMATION
  Report Type: 
  Country: None (occurrence: None)
  Receive Date: 20110725
  Receipt Date: 20110718
  Transmission Date: 20111222
  Serious: Yes (Hospitalization, Other)
  Sender: FDA-Public Use
  Company Number: CA-JNJFOC-20110700450

PATIENT
  Sex: Female
  Weight: 7.5 kg

DRUGS (8)
  1. PANCREAZE [Suspect]
     Dosage: 10 (UNSPECIFIED UNIT)
     Route: 048
     Dates: start: 20100601
  2. SYNTHROID [Concomitant]
     Indication: HYPERTHYROIDISM
     Route: 048
     Dates: start: 20110501
  3. OMEPRAZOLE [Concomitant]
     Indication: GASTROOESOPHAGEAL REFLUX DISEASE
     Route: 048
     Dates: start: 20110501
  4. PULMICORT [Concomitant]
     Indication: ANTIINFLAMMATORY THERAPY
     Route: 055
  5. PANCREAZE [Suspect]
     Indication: CYSTIC FIBROSIS
     Route: 048
     Dates: start: 20110629
  6. VENTOLIN HFA [Concomitant]
     Indication: ANTASTHMATIC DRUG LEVEL
     Route: 055
  7. VITAMIN D [Concomitant]
     Indication: NUTRITIONAL SUPPORT
     Route: 048
  8. ALL OTHER THERAPEUTIC PRODUCT [Concomitant]
     Route: 055
     Dates: start: 20110501

REACTIONS (2)
  - FAECALOMA [None]
  - PRODUCT QUALITY ISSUE [None]
